FAERS Safety Report 17765406 (Version 6)
Quarter: 2020Q3

REPORT INFORMATION
  Report Type: Report from Study
  Country: JP (occurrence: JP)
  Receive Date: 20200511
  Receipt Date: 20200709
  Transmission Date: 20201102
  Serious: Yes (Hospitalization)
  Sender: FDA-Public Use
  Company Number: JP-ROCHE-2597106

PATIENT
  Age: 79 Year
  Sex: Male
  Weight: 45 kg

DRUGS (19)
  1. KETAS [Concomitant]
     Active Substance: IBUDILAST
     Indication: SEASONAL ALLERGY
     Dosage: ADEQUATE DOSE
     Route: 047
  2. ATEZOLIZUMAB. [Suspect]
     Active Substance: ATEZOLIZUMAB
     Indication: NON-SMALL CELL LUNG CANCER
     Route: 041
     Dates: start: 20200417
  3. ALIMTA [Suspect]
     Active Substance: PEMETREXED DISODIUM
     Indication: NON-SMALL CELL LUNG CANCER
     Route: 041
     Dates: start: 20200417
  4. APREPITANT. [Concomitant]
     Active Substance: APREPITANT
     Indication: PROPHYLAXIS
     Route: 048
     Dates: start: 20200417
  5. BEVACIZUMAB. [Suspect]
     Active Substance: BEVACIZUMAB
     Indication: NON-SMALL CELL LUNG CANCER
     Dosage: DOSAGE IS UNCERTAIN.
     Route: 041
     Dates: start: 20200417
  6. CARBOPLATIN. [Suspect]
     Active Substance: CARBOPLATIN
     Indication: NON-SMALL CELL LUNG CANCER
     Dosage: AUC5 EVERY THREE WEEKS
     Route: 041
     Dates: start: 20200417
  7. AZILVA [Concomitant]
     Active Substance: AZILSARTAN KAMEDOXOMIL
     Indication: HYPERTENSION
     Route: 048
  8. BILANOA [Concomitant]
     Active Substance: BILASTINE
     Indication: RHINITIS ALLERGIC
     Route: 048
  9. GRANISETRON HYDROCHLORIDE. [Concomitant]
     Active Substance: GRANISETRON HYDROCHLORIDE
     Indication: PROPHYLAXIS
     Route: 041
     Dates: start: 20200417
  10. TAKECAB [Concomitant]
     Active Substance: VONOPRAZAN FUMARATE
     Indication: GASTROOESOPHAGEAL REFLUX DISEASE
     Route: 048
  11. ZOLPIDEM TARTRATE. [Concomitant]
     Active Substance: ZOLPIDEM TARTRATE
     Indication: INSOMNIA
     Dosage: 1, 2.5?5MG
     Route: 048
  12. HIRUDOID [Concomitant]
     Active Substance: GLYCOSAMINOGLYCANS
     Indication: DERMATITIS
     Dosage: ADEQUATE DOSE
     Route: 062
  13. CONTOMIN [Concomitant]
     Active Substance: CHLORPROMAZINE
     Indication: HICCUPS
     Dosage: SINGLE USE
     Route: 048
     Dates: start: 20200418
  14. D?SORBITOL [Concomitant]
     Indication: ABNORMAL FAECES
     Route: 048
     Dates: start: 20200420
  15. VEGIN [Concomitant]
     Indication: DERMATITIS
     Dosage: ADEQUATE DOSE
     Route: 062
  16. APREPITANT. [Concomitant]
     Active Substance: APREPITANT
     Route: 048
     Dates: start: 20200418
  17. LIDOMEX [Concomitant]
     Active Substance: PREDNISOLONE VALERATE ACETATE
     Indication: DERMATITIS
     Dosage: ADEQUATE DOSE
     Route: 062
  18. FRESMIN S [HYDROXOCOBALAMIN ACETATE] [Concomitant]
     Indication: PREMEDICATION
     Route: 048
     Dates: start: 20200402
  19. DECADRON (DEXAMETHASONE SODIUM PHOSPHATE) [Concomitant]
     Active Substance: DEXAMETHASONE SODIUM PHOSPHATE
     Indication: PROPHYLAXIS
     Route: 042
     Dates: start: 20200417

REACTIONS (1)
  - Purpura [Recovered/Resolved]

NARRATIVE: CASE EVENT DATE: 20200425
